FAERS Safety Report 16749096 (Version 1)
Quarter: 2019Q3

REPORT INFORMATION
  Report Type: Spontaneous
  Country: GB (occurrence: GB)
  Receive Date: 20190828
  Receipt Date: 20190828
  Transmission Date: 20191005
  Serious: Yes (Hospitalization)
  Sender: FDA-Public Use
  Company Number: GB-ACCORD-152859

PATIENT
  Age: 79 Year
  Sex: Female

DRUGS (8)
  1. LANSOPRAZOLE. [Concomitant]
     Active Substance: LANSOPRAZOLE
     Route: 048
  2. CLOPIDOGREL [Suspect]
     Active Substance: CLOPIDOGREL BISULFATE
     Indication: PRODUCT USED FOR UNKNOWN INDICATION
     Dosage: IN THE MORNING
     Route: 048
  3. COLESEVELAM/COLESEVELAM HYDROCHLORIDE [Concomitant]
     Dosage: LUNCHTIME
     Route: 048
  4. CYANOCOBALAMIN. [Concomitant]
     Active Substance: CYANOCOBALAMIN
     Dosage: IN THE MORNING
     Route: 048
  5. CARMELLOSE/CARMELLOSE CALCIUM/CARMELLOSE SODIUM [Concomitant]
     Dosage: 0.4ML UNIT, 1-2 DROPS
     Route: 031
  6. AMLODIPINE [Concomitant]
     Active Substance: AMLODIPINE BESYLATE
     Dosage: IN THE MORNING
     Route: 048
  7. BUDESONIDE/FORMOTEROL FUMARATE [Concomitant]
     Dosage: DRY POWDER
     Route: 055
  8. ATORVASTATIN [Concomitant]
     Active Substance: ATORVASTATIN
     Dosage: AT NIGHT
     Route: 048

REACTIONS (2)
  - Fall [Unknown]
  - Subdural haematoma [Recovered/Resolved with Sequelae]

NARRATIVE: CASE EVENT DATE: 20190714
